FAERS Safety Report 9471580 (Version 1)
Quarter: 2013Q3

REPORT INFORMATION
  Report Type: Spontaneous
  Country: US (occurrence: US)
  Receive Date: 20130822
  Receipt Date: 20130822
  Transmission Date: 20140515
  Serious: Yes (Hospitalization)
  Sender: FDA-Public Use
  Company Number: US-B.I. PHARMACEUTICALS,INC./RIDGEFIELD-2013-BI-25761BP

PATIENT
  Age: 58 Year
  Sex: Female

DRUGS (3)
  1. SPIRIVA [Suspect]
     Indication: PRODUCT USED FOR UNKNOWN INDICATION
     Dosage: 18 MCG
     Route: 055
  2. LIPITOR [Concomitant]
  3. MAVIK [Concomitant]

REACTIONS (1)
  - Cerebrovascular accident [Recovered/Resolved with Sequelae]
